FAERS Safety Report 24200625 (Version 2)
Quarter: 2025Q4

REPORT INFORMATION
  Report Type: Spontaneous
  Country: US (occurrence: US)
  Receive Date: 20240812
  Receipt Date: 20251210
  Transmission Date: 20260117
  Serious: No
  Sender: ANI
  Company Number: US-ANIPHARMA-2024-US-036342

PATIENT
  Sex: Male

DRUGS (15)
  1. CORTICOTROPIN [Suspect]
     Active Substance: CORTICOTROPIN
     Indication: Polymyositis
     Dosage: INJECT 80 UNITS (1ML) SUBCUTANEOUSLY TWO TIMES PER WEEK FOR 4 WEEKS THEN REDUCE TO 40 UNITS (0.5ML)
     Route: 058
  2. COQ10 ADVANCED FORMULA [Concomitant]
  3. ODORLESS GARLIC/VITAMIN E [Concomitant]
  4. OCUVITE ADULT FORMULA [Concomitant]
  5. CHERRY CONCENTRATE [Concomitant]
  6. AMLODIPINE BESYLATE [Concomitant]
     Active Substance: AMLODIPINE BESYLATE
  7. ASPIRIN [Concomitant]
     Active Substance: ASPIRIN
  8. LUTEIN [Concomitant]
     Active Substance: LUTEIN
  9. VITAMIN D [Concomitant]
     Active Substance: VITAMIN D NOS
  10. FISH OIL [Concomitant]
     Active Substance: FISH OIL
  11. ATENOLOL [Concomitant]
     Active Substance: ATENOLOL
  12. FOLIC ACID [Concomitant]
     Active Substance: FOLIC ACID
  13. B12 [Concomitant]
  14. ZINC [Concomitant]
     Active Substance: ZINC
  15. MYCOPHENOLATE MOFETIL [Concomitant]
     Active Substance: MYCOPHENOLATE MOFETIL

REACTIONS (3)
  - Mobility decreased [Unknown]
  - Apathy [Unknown]
  - Peripheral swelling [Not Recovered/Not Resolved]
